FAERS Safety Report 5518883-0 (Version None)
Quarter: 2007Q4

REPORT INFORMATION
  Report Type: 
  Country: None (occurrence: None)
  Receive Date: 20071114
  Receipt Date: 20071102
  Transmission Date: 20080405
  Serious: Yes (Hospitalization)
  Sender: FDA-Public Use
  Company Number: S07-USA-05359-01

PATIENT
  Age: 80 Year
  Sex: Male

DRUGS (1)
  1. NAMENDA [Suspect]
     Indication: DEMENTIA ALZHEIMER'S TYPE
     Dates: start: 20071001, end: 20071003

REACTIONS (11)
  - ACCIDENTAL OVERDOSE [None]
  - ASTHENIA [None]
  - CONFUSIONAL STATE [None]
  - DEMENTIA [None]
  - FEELING ABNORMAL [None]
  - HEART RATE DECREASED [None]
  - MEMORY IMPAIRMENT [None]
  - NAUSEA [None]
  - RETCHING [None]
  - SOMNOLENCE [None]
  - VOMITING [None]
